FAERS Safety Report 5844903-X (Version None)
Quarter: 2008Q3

REPORT INFORMATION
  Report Type: 
  Country: None (occurrence: None)
  Receive Date: 20080813
  Receipt Date: 20080813
  Transmission Date: 20090109
  Serious: Yes (Other)
  Sender: FDA-Public Use
  Company Number: None

PATIENT
  Sex: Female
  Weight: 71.6683 kg

DRUGS (1)
  1. LUPRON DEPOT 3.75MG ABBOTT [Suspect]
     Indication: ENDOMETRIOSIS
     Dates: start: 20071001, end: 20080701

REACTIONS (5)
  - ARTHRALGIA [None]
  - DIZZINESS [None]
  - FALL [None]
  - MIGRAINE [None]
  - MOOD SWINGS [None]
